FAERS Safety Report 6005060-2 (Version None)
Quarter: 2008Q4

REPORT INFORMATION
  Report Type: 
  Country: None (occurrence: None)
  Receive Date: 20081215
  Receipt Date: 20081202
  Transmission Date: 20090506
  Serious: Yes (Hospitalization)
  Sender: FDA-Public Use
  Company Number: FABR-1000558

PATIENT
  Age: 44 Year
  Sex: Male
  Weight: 65 kg

DRUGS (17)
  1. FABRAZYME [Suspect]
     Indication: FABRY'S DISEASE
     Dosage: 65 MG, INTRAVENOUS
     Route: 042
     Dates: start: 20061107
  2. ACETAMINOPHEN [Concomitant]
  3. ASPIRIN [Concomitant]
  4. CALCITRIOL [Concomitant]
  5. CALCIUM CARBONATE (CALCIUM CARBONATE) [Concomitant]
  6. CLOTRIMAZOLE [Concomitant]
  7. DOCUSATE (DOCUSATE) [Concomitant]
  8. METOPROLOL TARTRATE [Concomitant]
  9. MYCOPHENOLIC ACID [Concomitant]
  10. OXYCODONE HCL [Concomitant]
  11. RANITIDINE [Concomitant]
  12. TACROLIMUS [Concomitant]
  13. BACTRIM [Concomitant]
  14. PRENATAL VITAMINS (ASCORBIC ACID, BIOTIN, MINERALS NOS, NICOTNIC ACID, [Concomitant]
  15. VALGANCICLOVIR HCL [Concomitant]
  16. SODIUM PHOSPHATE (SODIUM PHOSPHATE) [Concomitant]
  17. FLOMAX [Concomitant]

REACTIONS (6)
  - CEREBROVASCULAR ACCIDENT [None]
  - INFUSION RELATED REACTION [None]
  - NAUSEA [None]
  - RENAL FAILURE CHRONIC [None]
  - RENAL TRANSPLANT [None]
  - VOMITING [None]
